FAERS Safety Report 5005127-1 (Version None)
Quarter: 2006Q2

REPORT INFORMATION
  Report Type: 
  Country: None (occurrence: None)
  Receive Date: 20060516
  Receipt Date: 20060516
  Transmission Date: 20061013
  Serious: Yes (Hospitalization)
  Sender: FDA-Public Use
  Company Number: None

PATIENT
  Age: 59 Year
  Sex: Male
  Weight: 69 kg

DRUGS (2)
  1. PEG-INTERFERON 120MCG/0.5ML [Suspect]
     Indication: HEPATITIS C
     Dosage: 120MCG   QWEEK  SQ
     Route: 058
     Dates: start: 20051101, end: 20060301
  2. RIBAVIRIN [Suspect]
     Indication: HEPATITIS C
     Dosage: 400MG  BID  PO
     Route: 048
     Dates: start: 20051101, end: 20060301

REACTIONS (2)
  - PYREXIA [None]
  - URINARY TRACT INFECTION [None]
